FAERS Safety Report 7874603-6 (Version None)
Quarter: 2011Q4

REPORT INFORMATION
  Report Type: 
  Country: None (occurrence: None)
  Receive Date: 20111031
  Receipt Date: 20111026
  Transmission Date: 20120403
  Serious: Yes (Other)
  Sender: FDA-Public Use
  Company Number: JP-PFIZER INC-2011252515

PATIENT
  Age: 77 Year
  Sex: Male

DRUGS (15)
  1. RIZABEN [Concomitant]
     Dosage: 4 DF, DAILY
     Route: 048
     Dates: end: 20110902
  2. ZOLPIDEM [Concomitant]
     Dosage: UNK
     Route: 048
  3. DICLOFENAC SODIUM [Concomitant]
     Dosage: UNK
     Route: 054
  4. CEFAZOLIN SODIUM [Suspect]
     Dosage: 1 G, 1X/DAY
     Route: 041
     Dates: start: 20110822, end: 20110822
  5. OPALMON [Concomitant]
     Dosage: UNK
     Route: 048
     Dates: end: 20110902
  6. NORVASC [Concomitant]
     Dosage: UNK
     Route: 048
  7. CELECOXIB [Concomitant]
     Dosage: UNK
     Route: 048
  8. SELBEX [Concomitant]
     Dosage: UNK
     Route: 048
  9. MAGNESIUM OXIDE [Concomitant]
     Dosage: UNK
     Route: 048
  10. NEUROTROPIN [Suspect]
     Dosage: 2 DF, 2X/DAY (AFTER BREAKFAST AND SUPPER)
     Route: 048
     Dates: start: 20110824, end: 20110902
  11. LYRICA [Suspect]
     Indication: PAIN
     Dosage: 75 MG, 1X/DAY (AFTER SUPPER)
     Route: 048
     Dates: start: 20110824, end: 20110902
  12. MYONAL [Concomitant]
     Dosage: UNK
     Route: 048
     Dates: end: 20110902
  13. DUTASTERIDE [Concomitant]
     Dosage: UNK
     Route: 048
  14. FLIVAS [Concomitant]
     Dosage: UNK
     Route: 048
  15. CEFAZOLIN SODIUM [Suspect]
     Dosage: 1 G, 2X/DAY
     Route: 041
     Dates: start: 20110823, end: 20110825

REACTIONS (1)
  - HEPATIC FUNCTION ABNORMAL [None]
